FAERS Safety Report 11647796 (Version 1)
Quarter: 2015Q4

REPORT INFORMATION
  Report Type: Spontaneous
  Country: US (occurrence: None)
  Receive Date: 20151020
  Receipt Date: 20151020
  Transmission Date: 20160304
  Serious: Yes (Hospitalization)
  Sender: FDA-Public Use
  Company Number: None

PATIENT
  Age: 62 Year
  Sex: Female
  Weight: 68.3 kg

DRUGS (8)
  1. CYCLOPHOSPHAMIDE. [Suspect]
     Active Substance: CYCLOPHOSPHAMIDE
     Dates: end: 20151010
  2. DOXORUBICIN HYDROCHLORIDE. [Suspect]
     Active Substance: DOXORUBICIN HYDROCHLORIDE
     Dates: end: 20151008
  3. ETOPOSIDE (VP-16) [Suspect]
     Active Substance: ETOPOSIDE
     Dates: end: 20151008
  4. BENZODIAZEPINE [Concomitant]
     Active Substance: BENZODIAZEPINE
  5. METHOTREXATE [Suspect]
     Active Substance: METHOTREXATE
     Dates: end: 20151009
  6. PREDNISONE. [Suspect]
     Active Substance: PREDNISONE
     Dates: end: 20151009
  7. RITUXIMAB (MOAB C2B8 ANTI CD20. CHIMERIC) [Suspect]
     Active Substance: RITUXIMAB
     Dates: end: 20151008
  8. VINCRISTINE SULFATE. [Suspect]
     Active Substance: VINCRISTINE SULFATE
     Dates: end: 20151008

REACTIONS (8)
  - Neuropathy peripheral [None]
  - Hypotension [None]
  - Adrenal insufficiency [None]
  - Dizziness [None]
  - Chills [None]
  - Mucosal inflammation [None]
  - Blood lactic acid increased [None]
  - Pleural effusion [None]

NARRATIVE: CASE EVENT DATE: 20151009
